FAERS Safety Report 12976411 (Version 1)
Quarter: 2016Q4

REPORT INFORMATION
  Report Type: Report from Study
  Country: NL (occurrence: NL)
  Receive Date: 20161127
  Receipt Date: 20161127
  Transmission Date: 20170207
  Serious: Yes (Other)
  Sender: FDA-Public Use
  Company Number: NL-AMGEN-NLDSL2016164658

PATIENT
  Age: 76 Year
  Sex: Male

DRUGS (11)
  1. ALLOPURINOL. [Concomitant]
     Active Substance: ALLOPURINOL
     Dosage: UNK
  2. XGEVA [Suspect]
     Active Substance: DENOSUMAB
     Indication: PROSTATE CANCER METASTATIC
     Dosage: 120 MG, (70MG/ML FL 1.7) Q4WK
     Route: 058
     Dates: start: 20161024
  3. ACETYLSALICYLIC ACID [Concomitant]
     Active Substance: ASPIRIN
     Dosage: 80 MG, QD
  4. ENALAPRIL MYLAN [Concomitant]
     Active Substance: ENALAPRIL
     Dosage: 5 MG, QD
     Dates: start: 20161118
  5. CALCIUM CARBONATE W/COLECALCIFEROL [Concomitant]
     Active Substance: CALCIUM CARBONATE\CHOLECALCIFEROL
     Dosage: 1.2G/ 440 IU, (500 MG CALCIUM) QD
     Dates: start: 20161024
  6. OXAZEPAM. [Concomitant]
     Active Substance: OXAZEPAM
     Dosage: 10 MG, QD
  7. CALCIUM CARBONATE. [Concomitant]
     Active Substance: CALCIUM CARBONATE
     Dosage: 1.25 G, ((500 MG CALCIUM)  QD
     Dates: start: 20161115
  8. METOCLOPRAMIDE. [Concomitant]
     Active Substance: METOCLOPRAMIDE
     Dosage: 10 MG, QD
     Dates: start: 20161024
  9. TEMAZEPAM. [Concomitant]
     Active Substance: TEMAZEPAM
     Dosage: 10 MG, UNK
     Dates: start: 20161112
  10. LIPITOR [Concomitant]
     Active Substance: ATORVASTATIN CALCIUM
     Dosage: 40 MG, QD
     Dates: start: 20161118
  11. MIRTAZAPINE. [Concomitant]
     Active Substance: MIRTAZAPINE
     Dosage: 30 MG, QD
     Dates: start: 20161114

REACTIONS (11)
  - Pneumonia [Unknown]
  - Respiratory alkalosis [Unknown]
  - Urinary retention [Unknown]
  - Liver function test abnormal [Unknown]
  - Chronic obstructive pulmonary disease [Unknown]
  - Febrile neutropenia [Recovered/Resolved]
  - Haemoglobin decreased [Unknown]
  - Hyponatraemia [Unknown]
  - Haematuria [Unknown]
  - Prostate cancer [Unknown]
  - Dyspnoea [Unknown]
